FAERS Safety Report 22295423 (Version 1)
Quarter: 2023Q2

REPORT INFORMATION
  Report Type: Spontaneous
  Country: US (occurrence: US)
  Receive Date: 20230508
  Receipt Date: 20230508
  Transmission Date: 20230722
  Serious: No
  Sender: FDA-Public Use
  Company Number: US-TAKEDA-2023TUS045636

PATIENT
  Sex: Female

DRUGS (1)
  1. VYVANSE [Suspect]
     Active Substance: LISDEXAMFETAMINE DIMESYLATE
     Indication: Brain fog
     Dosage: 10 MILLIGRAM, QD
     Route: 065
     Dates: start: 20230505

REACTIONS (2)
  - Insurance issue [Unknown]
  - Off label use [Unknown]
